FAERS Safety Report 17836573 (Version 1)
Quarter: 2020Q2

REPORT INFORMATION
  Report Type: Spontaneous
  Country: MX (occurrence: MX)
  Receive Date: 20200529
  Receipt Date: 20200529
  Transmission Date: 20200714
  Serious: Yes (Other)
  Sender: FDA-Public Use
  Company Number: MX-ROCHE-2605894

PATIENT
  Age: 62 Year
  Sex: Female
  Weight: 90 kg

DRUGS (1)
  1. ACTEMRA [Suspect]
     Active Substance: TOCILIZUMAB
     Indication: COVID-19
     Dosage: SINGLE DOSE
     Route: 042
     Dates: start: 20200518, end: 20200518

REACTIONS (7)
  - Multiple organ dysfunction syndrome [Not Recovered/Not Resolved]
  - Renal failure [Recovering/Resolving]
  - Hypertension [Recovered/Resolved]
  - Hypotension [Recovered/Resolved]
  - Respiratory failure [Not Recovered/Not Resolved]
  - Product use in unapproved indication [Unknown]
  - Off label use [Unknown]

NARRATIVE: CASE EVENT DATE: 20200518
